FAERS Safety Report 6193340-X (Version None)
Quarter: 2009Q2

REPORT INFORMATION
  Report Type: 
  Country: None (occurrence: None)
  Receive Date: 20090518
  Receipt Date: 20090513
  Transmission Date: 20091009
  Serious: Yes (Hospitalization)
  Sender: FDA-Public Use
  Company Number: US-EISAI INC.-E2080-00105-CLI-US

PATIENT
  Sex: Male
  Weight: 89.5 kg

DRUGS (11)
  1. E2080/PLACEBO [Suspect]
     Indication: EPILEPSY
     Dosage: DOUBLE-BLIND
     Route: 048
     Dates: start: 20090120, end: 20090122
  2. E2080/PLACEBO [Suspect]
     Dosage: DOUBLE-BLIND
     Route: 048
     Dates: start: 20090123, end: 20090125
  3. E2080/PLACEBO [Suspect]
     Dosage: DOUBLE-BLIND
     Route: 048
     Dates: start: 20090126, end: 20090128
  4. E2080/PLACEBO [Suspect]
     Dosage: DOUBLE-BLIND
     Route: 048
     Dates: start: 20090129, end: 20090501
  5. PROSCAR [Concomitant]
     Route: 048
     Dates: start: 20040101
  6. LAMICTAL [Concomitant]
     Indication: EPILEPSY
     Route: 048
     Dates: start: 20040101
  7. KEPPRA [Concomitant]
     Indication: EPILEPSY
     Route: 048
     Dates: start: 20040101
  8. ZOCOR [Concomitant]
     Route: 048
     Dates: start: 20010101
  9. HYDROCHLOROTHIAZIDE [Concomitant]
     Indication: HYPERTENSION
     Route: 048
     Dates: start: 20040101
  10. LOVASTATIN [Concomitant]
     Route: 048
     Dates: start: 20010101
  11. TARKA [Concomitant]
     Indication: HYPERTENSION
     Route: 048
     Dates: start: 19900101

REACTIONS (2)
  - SARCOMA [None]
  - TRANSIENT ISCHAEMIC ATTACK [None]
